FAERS Safety Report 6416490-9 (Version None)
Quarter: 2009Q4

REPORT INFORMATION
  Report Type: 
  Country: None (occurrence: None)
  Receive Date: 20091023
  Receipt Date: 20091013
  Transmission Date: 20100525
  Serious: Yes (Other)
  Sender: FDA-Public Use
  Company Number: ADR42962009

PATIENT
  Sex: Female

DRUGS (3)
  1. LAMOTRIGINE [Suspect]
  2. AMISULPRIDE [Concomitant]
  3. CLOZARIL [Concomitant]

REACTIONS (3)
  - BLOOD PROLACTIN INCREASED [None]
  - NEUTROPHIL COUNT DECREASED [None]
  - WHITE BLOOD CELL COUNT DECREASED [None]
